FAERS Safety Report 25625215 (Version 1)
Quarter: 2025Q3

REPORT INFORMATION
  Report Type: Spontaneous
  Country: GB (occurrence: GB)
  Receive Date: 20250731
  Receipt Date: 20250731
  Transmission Date: 20251021
  Serious: Yes (Death, Other)
  Sender: REGENERON
  Company Number: GB-SA-2025SA220504

PATIENT
  Age: 68 Year
  Sex: Male

DRUGS (1)
  1. PRALUENT [Suspect]
     Active Substance: ALIROCUMAB
     Indication: Hypercholesterolaemia
     Dosage: 1 DF, QOW, SOLUTION FOR INJECTION
     Route: 058
     Dates: start: 202011, end: 202507

REACTIONS (1)
  - Neoplasm malignant [Fatal]
